FAERS Safety Report 8309748 (Version 6)
Quarter: 2013Q1

REPORT INFORMATION
  Report Type: Spontaneous
  Country: US (occurrence: US)
  Receive Date: 20111223
  Receipt Date: 20130328
  Transmission Date: 20140127
  Serious: Yes (Other)
  Sender: FDA-Public Use
  Company Number: US-BRISTOL-MYERS SQUIBB COMPANY-16294050

PATIENT
  Age: 87 Year
  Sex: Female
  Weight: 84 kg

DRUGS (2)
  1. COUMADIN TABS 1 MG [Suspect]
     Indication: CARDIAC PACEMAKER INSERTION
     Dosage: 4MG:5DY/WK AND 6DY/WK,2MG:3DYS/WEEK AND 1 DY/WK, EXP : 02JAN2014
     Route: 048
  2. COUMADIN TABS 1 MG [Suspect]
     Indication: ATRIAL FIBRILLATION
     Dosage: 4MG:5DY/WK AND 6DY/WK,2MG:3DYS/WEEK AND 1 DY/WK, EXP : 02JAN2014
     Route: 048

REACTIONS (14)
  - Hiatus hernia [Unknown]
  - Tooth extraction [Unknown]
  - International normalised ratio abnormal [Unknown]
  - Fall [Unknown]
  - Local swelling [Unknown]
  - Nasopharyngitis [Unknown]
  - Weight decreased [Unknown]
  - Incorrect dose administered [Unknown]
  - Malaise [Unknown]
  - Contusion [Unknown]
  - Epistaxis [Unknown]
  - Body height decreased [Unknown]
  - Drug dose omission [Unknown]
  - Pain in extremity [Unknown]
